FAERS Safety Report 9492950 (Version 2)
Quarter: 2013Q3

REPORT INFORMATION
  Report Type: Report from Study
  Country: CA (occurrence: CA)
  Receive Date: 20130902
  Receipt Date: 20130904
  Transmission Date: 20140515
  Serious: No
  Sender: FDA-Public Use
  Company Number: CA-ROCHE-1267900

PATIENT
  Age: 69 Year
  Sex: Female
  Weight: 77.1 kg

DRUGS (12)
  1. RITUXAN [Suspect]
     Indication: RHEUMATOID ARTHRITIS
     Dosage: FREQUENCY:  DAY 1 AND DAY 15
     Route: 042
     Dates: start: 20120712
  2. PROCHLORPERAZINE [Suspect]
     Indication: PRODUCT USED FOR UNKNOWN INDICATION
     Route: 065
  3. DIPHENHYDRAMINE HCL [Concomitant]
     Indication: PREMEDICATION
     Route: 048
     Dates: start: 20120712
  4. ACETAMINOPHEN [Concomitant]
     Indication: PREMEDICATION
     Route: 048
     Dates: start: 20120712
  5. PREDNISONE [Concomitant]
     Indication: PREMEDICATION
     Dosage: 50 MG X 2
     Route: 065
     Dates: start: 20120712
  6. FOLIC ACID [Concomitant]
  7. DIDROCAL [Concomitant]
  8. PANTOPRAZOLE [Concomitant]
  9. CIPRALEX [Concomitant]
  10. GABAPENTIN [Concomitant]
  11. AMITRIPTYLINE [Concomitant]
  12. METHOTREXATE [Concomitant]

REACTIONS (2)
  - Post procedural infection [Recovered/Resolved]
  - Drug ineffective [Unknown]
